FAERS Safety Report 7330137-9 (Version None)
Quarter: 2011Q1

REPORT INFORMATION
  Report Type: 
  Country: None (occurrence: None)
  Receive Date: 20110303
  Receipt Date: 20110223
  Transmission Date: 20110831
  Serious: Yes (Other)
  Sender: FDA-Public Use
  Company Number: PHHO2011FR01511

PATIENT
  Sex: Female

DRUGS (4)
  1. MIRENA [Concomitant]
     Indication: CONTRACEPTION
  2. FTY 720 [Suspect]
     Indication: MULTIPLE SCLEROSIS
     Dosage: DOSE BLINDED
     Route: 048
  3. FTY 720 [Suspect]
     Dosage: 0.5 MG, QD
     Route: 048
     Dates: start: 20081218
  4. CLONAZEPAM [Concomitant]
     Indication: PARAESTHESIA

REACTIONS (1)
  - BASAL CELL CARCINOMA [None]
